FAERS Safety Report 5180266-3 (Version None)
Quarter: 2006Q4

REPORT INFORMATION
  Report Type: 
  Country: None (occurrence: None)
  Receive Date: 20061212
  Receipt Date: 20061205
  Transmission Date: 20070319
  Serious: Yes (Death)
  Sender: FDA-Public Use
  Company Number: 220001N06CAN

PATIENT
  Age: 7 Year
  Sex: Female

DRUGS (1)
  1. SAIZEN [Suspect]
     Dosage: 0.4 MG, 7 IN 1 WEEKS
     Dates: start: 20050419

REACTIONS (1)
  - DEATH [None]
